FAERS Safety Report 13162311 (Version 1)
Quarter: 2017Q1

REPORT INFORMATION
  Report Type: Spontaneous
  Country: ZA (occurrence: US)
  Receive Date: 20170125
  Receipt Date: 20170125
  Transmission Date: 20170428
  Serious: Yes (Other)
  Sender: FDA-Public Use
  Company Number: None

PATIENT
  Age: 60 Year
  Sex: Female
  Weight: 92 kg

DRUGS (3)
  1. DIPRIVAN [Suspect]
     Active Substance: PROPOFOL
     Indication: ANAESTHESIA
     Route: 042
     Dates: start: 20160811
  2. ELTROXIN [Concomitant]
     Active Substance: LEVOTHYROXINE
  3. CO EXFORGE [Concomitant]

REACTIONS (11)
  - Vomiting [None]
  - Jaundice [None]
  - Glossodynia [None]
  - Tongue discolouration [None]
  - Decreased appetite [None]
  - Blood pressure decreased [None]
  - Dizziness [None]
  - Cough [None]
  - Weight decreased [None]
  - Nausea [None]
  - Anuria [None]

NARRATIVE: CASE EVENT DATE: 20161108
